FAERS Safety Report 8084962-X (Version None)
Quarter: 2012Q1

REPORT INFORMATION
  Report Type: 
  Country: None (occurrence: None)
  Receive Date: 20120128
  Receipt Date: 20110331
  Transmission Date: 20120608
  Serious: No
  Sender: FDA-Public Use
  Company Number: US-ABBOTT-11P-163-0715690-00

PATIENT
  Age: 39 Year
  Sex: Male

DRUGS (7)
  1. C.F.S. [Concomitant]
     Indication: PRODUCT USED FOR UNKNOWN INDICATION
  2. HUMIRA [Suspect]
     Indication: PSORIATIC ARTHROPATHY
     Dates: start: 20110330
  3. FOLIC ACID [Concomitant]
     Indication: VITAMIN SUPPLEMENTATION
     Dosage: VITAMIN OR OTHER NATURAL SUPPLEMENT
  4. DEVILS CLAW ROOT [Concomitant]
     Indication: PRODUCT USED FOR UNKNOWN INDICATION
  5. METHOTREXATE [Concomitant]
     Indication: PRODUCT USED FOR UNKNOWN INDICATION
     Dosage: 8 TABS WEEKLY
  6. EVERFLEX [Concomitant]
     Indication: PRODUCT USED FOR UNKNOWN INDICATION
  7. LIVER/GALLBLADDER DROPS [Concomitant]
     Indication: PRODUCT USED FOR UNKNOWN INDICATION

REACTIONS (1)
  - INCORRECT STORAGE OF DRUG [None]
